FAERS Safety Report 22061989 (Version 1)
Quarter: 2023Q1

REPORT INFORMATION
  Report Type: Spontaneous
  Country: US (occurrence: US)
  Receive Date: 20230304
  Receipt Date: 20230304
  Transmission Date: 20230418
  Serious: No
  Sender: FDA-Public Use
  Company Number: US-JNJFOC-20230304677

PATIENT
  Age: 57 Year
  Sex: Female

DRUGS (1)
  1. TREMFYA [Suspect]
     Active Substance: GUSELKUMAB
     Indication: Psoriasis
     Route: 058
     Dates: start: 20211209

REACTIONS (5)
  - Psoriasis [Unknown]
  - Psoriasis [Unknown]
  - Rash [Unknown]
  - Discomfort [Unknown]
  - Inappropriate schedule of product administration [Unknown]
